FAERS Safety Report 12369365 (Version 1)
Quarter: 2016Q2

REPORT INFORMATION
  Report Type: Spontaneous
  Country: PL (occurrence: PL)
  Receive Date: 20160513
  Receipt Date: 20160513
  Transmission Date: 20160815
  Serious: Yes (Other)
  Sender: FDA-Public Use
  Company Number: PL-BAXTER-2016BAX024958

PATIENT
  Age: 52 Year
  Sex: Male

DRUGS (19)
  1. CYCLOPHOSPHAMIDE. [Concomitant]
     Active Substance: CYCLOPHOSPHAMIDE
     Indication: MALIGNANT NEOPLASM PROGRESSION
  2. ONCOVIN [Concomitant]
     Active Substance: VINCRISTINE SULFATE
     Indication: MALIGNANT NEOPLASM PROGRESSION
  3. RITUXIMAB [Concomitant]
     Active Substance: RITUXIMAB
     Indication: HEAVY CHAIN DISEASE
     Route: 065
  4. BORTEZOMIB [Concomitant]
     Active Substance: BORTEZOMIB
     Indication: HEAVY CHAIN DISEASE
     Route: 065
  5. ENDOXAN [Suspect]
     Active Substance: CYCLOPHOSPHAMIDE
     Indication: MALIGNANT NEOPLASM PROGRESSION
     Route: 065
  6. THALIDOMIDE [Suspect]
     Active Substance: THALIDOMIDE
     Indication: HEAVY CHAIN DISEASE
     Route: 065
  7. DEXAMETHAZONE [Suspect]
     Active Substance: DEXAMETHASONE
     Indication: HEAVY CHAIN DISEASE
     Route: 065
  8. FLUDARABINE [Concomitant]
     Active Substance: FLUDARABINE PHOSPHATE
     Indication: HEAVY CHAIN DISEASE
     Route: 065
  9. RITUXIMAB [Concomitant]
     Active Substance: RITUXIMAB
     Indication: MALIGNANT NEOPLASM PROGRESSION
  10. PREDNISONE. [Concomitant]
     Active Substance: PREDNISONE
     Indication: HEAVY CHAIN DISEASE
     Route: 065
  11. PREDNISONE. [Concomitant]
     Active Substance: PREDNISONE
     Indication: MALIGNANT NEOPLASM PROGRESSION
  12. CYCLOPHOSPHAMIDE. [Concomitant]
     Active Substance: CYCLOPHOSPHAMIDE
     Indication: HEAVY CHAIN DISEASE
     Route: 065
  13. NONPEGYLATED LIPOSOMAL DOXORUBICIN [Concomitant]
     Indication: HEAVY CHAIN DISEASE
     Route: 065
  14. ONCOVIN [Concomitant]
     Active Substance: VINCRISTINE SULFATE
     Indication: HEAVY CHAIN DISEASE
     Route: 065
  15. ENDOXAN [Suspect]
     Active Substance: CYCLOPHOSPHAMIDE
     Indication: HEAVY CHAIN DISEASE
  16. BORTEZOMIB [Concomitant]
     Active Substance: BORTEZOMIB
     Indication: MALIGNANT NEOPLASM PROGRESSION
  17. THALIDOMIDE [Suspect]
     Active Substance: THALIDOMIDE
     Indication: MALIGNANT NEOPLASM PROGRESSION
  18. DEXAMETHAZONE [Suspect]
     Active Substance: DEXAMETHASONE
     Indication: MALIGNANT NEOPLASM PROGRESSION
  19. NONPEGYLATED LIPOSOMAL DOXORUBICIN [Concomitant]
     Indication: MALIGNANT NEOPLASM PROGRESSION

REACTIONS (1)
  - Drug ineffective [Recovering/Resolving]
